FAERS Safety Report 18263572 (Version 1)
Quarter: 2020Q3

REPORT INFORMATION
  Report Type: Spontaneous
  Country: US (occurrence: US)
  Receive Date: 20200914
  Receipt Date: 20200914
  Transmission Date: 20201103
  Serious: No
  Sender: FDA-Public Use
  Company Number: US-BAYER-2020-187394

PATIENT
  Age: 73 Year
  Sex: Male

DRUGS (6)
  1. VENCLEXTA [Concomitant]
     Active Substance: VENETOCLAX
     Indication: CHRONIC LYMPHOCYTIC LEUKAEMIA
     Dosage: 200 MG
     Route: 048
     Dates: start: 20200615, end: 2020
  2. ALEVE [Suspect]
     Active Substance: NAPROXEN SODIUM
     Indication: ILIUM FRACTURE
     Dosage: UNK
     Dates: start: 2020
  3. VENCLEXTA [Concomitant]
     Active Substance: VENETOCLAX
     Indication: CHRONIC LYMPHOCYTIC LEUKAEMIA
     Dosage: 100 MG
     Route: 048
     Dates: start: 20190121
  4. VENCLEXTA [Concomitant]
     Active Substance: VENETOCLAX
     Indication: CHRONIC LYMPHOCYTIC LEUKAEMIA
     Dosage: 400 MG
     Route: 048
  5. HYOSCYAMINE. [Concomitant]
     Active Substance: HYOSCYAMINE
     Indication: MUSCLE SPASMS
     Dosage: 0.125 MG, Q4HR
  6. SUCRALFATE. [Concomitant]
     Active Substance: SUCRALFATE
     Dosage: UNK

REACTIONS (2)
  - Gastric disorder [None]
  - Product use in unapproved indication [None]

NARRATIVE: CASE EVENT DATE: 2020
